FAERS Safety Report 7007075-4 (Version None)
Quarter: 2010Q3

REPORT INFORMATION
  Report Type: 
  Country: None (occurrence: None)
  Receive Date: 20100920
  Receipt Date: 20100902
  Transmission Date: 20110219
  Serious: Yes (Other)
  Sender: FDA-Public Use
  Company Number: ACO_02093_2010

PATIENT
  Age: 56 Year
  Sex: Female
  Weight: 54.4316 kg

DRUGS (5)
  1. AMPYRA [Suspect]
     Indication: GAIT DISTURBANCE
     Dosage: 10 MG BID ORAL
     Route: 048
     Dates: start: 20100601
  2. SONATA /01454001/ [Concomitant]
  3. XANAX [Concomitant]
  4. CELEXA [Concomitant]
  5. TIZANIDINE HCL [Concomitant]

REACTIONS (4)
  - BASAL CELL CARCINOMA [None]
  - DIZZINESS [None]
  - FEELING HOT [None]
  - MULTIPLE SCLEROSIS RELAPSE [None]
